FAERS Safety Report 6231534-5 (Version None)
Quarter: 2009Q2

REPORT INFORMATION
  Report Type: 
  Country: None (occurrence: None)
  Receive Date: 20090616
  Receipt Date: 20090604
  Transmission Date: 20091009
  Serious: Yes (Hospitalization, Other)
  Sender: FDA-Public Use
  Company Number: FR-JNJFOC-20090601317

PATIENT
  Sex: Female

DRUGS (11)
  1. RISPERDAL [Suspect]
     Route: 048
  2. RISPERDAL [Suspect]
     Indication: DRUG USE FOR UNKNOWN INDICATION
     Route: 048
  3. BROMAZEPAM [Suspect]
     Route: 065
  4. BROMAZEPAM [Suspect]
     Indication: DRUG USE FOR UNKNOWN INDICATION
     Route: 065
  5. SULFARLEM [Suspect]
     Indication: DRUG USE FOR UNKNOWN INDICATION
     Route: 048
  6. AKINETON [Suspect]
     Route: 048
  7. AKINETON [Suspect]
     Indication: DRUG USE FOR UNKNOWN INDICATION
     Route: 048
  8. FORLAX [Concomitant]
     Route: 065
  9. AERIUS [Concomitant]
     Route: 065
  10. ROZEX [Concomitant]
     Route: 065
  11. DEXERYL [Concomitant]
     Route: 065

REACTIONS (6)
  - BRAIN MASS [None]
  - CONFUSIONAL STATE [None]
  - DYSARTHRIA [None]
  - FALL [None]
  - GAIT DISTURBANCE [None]
  - HYPOTHERMIA [None]
